FAERS Safety Report 6964608-1 (Version None)
Quarter: 2010Q3

REPORT INFORMATION
  Report Type: 
  Country: None (occurrence: None)
  Receive Date: 20100903
  Receipt Date: 20100826
  Transmission Date: 20110219
  Serious: Yes (Other)
  Sender: FDA-Public Use
  Company Number: US-ASTRAZENECA-2007UW04986

PATIENT
  Age: 14237 Day
  Sex: Female
  Weight: 95.7 kg

DRUGS (15)
  1. SEROQUEL [Suspect]
     Indication: ANXIETY
     Route: 048
     Dates: start: 20010301, end: 20030101
  2. SEROQUEL [Suspect]
     Indication: DEPRESSION
     Route: 048
     Dates: start: 20010301, end: 20030101
  3. SEROQUEL [Suspect]
     Indication: SCHIZOPHRENIA
     Route: 048
     Dates: start: 20010301, end: 20030101
  4. LANTUS [Concomitant]
     Dosage: 10 U
     Route: 065
  5. SIMVASTATIN [Concomitant]
     Route: 065
  6. METFORMIN [Concomitant]
     Route: 065
     Dates: end: 20070614
  7. ACTOS [Concomitant]
     Route: 065
  8. TRAMADOL HCL [Concomitant]
     Dosage: STREGTH 50 MG
     Route: 048
  9. ALBUTEROL [Concomitant]
     Route: 065
  10. WELLBUTRIN [Concomitant]
     Route: 065
  11. PRILOSEC [Concomitant]
     Route: 048
  12. PRAVACHOL [Concomitant]
     Route: 065
  13. GLUCOTROL [Concomitant]
     Route: 065
  14. GEODON [Concomitant]
  15. PROZAC [Concomitant]

REACTIONS (25)
  - AGORAPHOBIA [None]
  - ARTHROPOD BITE [None]
  - ASTHMA [None]
  - BLOOD CHOLESTEROL INCREASED [None]
  - BLOOD TRIGLYCERIDES INCREASED [None]
  - DEAFNESS [None]
  - DEAFNESS UNILATERAL [None]
  - DIABETES MELLITUS [None]
  - DIABETIC COMPLICATION [None]
  - DYSLIPIDAEMIA [None]
  - DYSPEPSIA [None]
  - EAR PAIN [None]
  - HEPATITIS C [None]
  - HYPERLIPIDAEMIA [None]
  - KETOACIDOSIS [None]
  - MULTIPLE INJURIES [None]
  - NEUROPATHY PERIPHERAL [None]
  - OBESITY [None]
  - PAIN IN EXTREMITY [None]
  - PANCREATITIS [None]
  - RHINITIS ALLERGIC [None]
  - TINNITUS [None]
  - TOOTH ABSCESS [None]
  - TYPE 2 DIABETES MELLITUS [None]
  - UTERINE DISORDER [None]
